FAERS Safety Report 7494526-4 (Version None)
Quarter: 2011Q2

REPORT INFORMATION
  Report Type: 
  Country: None (occurrence: None)
  Receive Date: 20110520
  Receipt Date: 20110509
  Transmission Date: 20111010
  Serious: Yes (Hospitalization)
  Sender: FDA-Public Use
  Company Number: PHHY2011TW14995

PATIENT
  Sex: Female

DRUGS (2)
  1. EXJADE [Suspect]
     Indication: THALASSAEMIA
     Dosage: 1375 MG DAILY
     Route: 048
  2. EXJADE [Suspect]
     Dosage: 1500 MG, DAILY

REACTIONS (6)
  - DIZZINESS [None]
  - CYSTITIS [None]
  - URETHRITIS [None]
  - ORAL MUCOSA EROSION [None]
  - MUSCULAR WEAKNESS [None]
  - ASTHENIA [None]
